FAERS Safety Report 7602114-1 (Version None)
Quarter: 2011Q3

REPORT INFORMATION
  Report Type: 
  Country: None (occurrence: None)
  Receive Date: 20110711
  Receipt Date: 20110711
  Transmission Date: 20111222
  Serious: Yes (Other)
  Sender: FDA-Public Use
  Company Number: None

PATIENT
  Age: 7 Year
  Sex: Female
  Weight: 3.6287 kg

DRUGS (1)
  1. EVAMIST [Suspect]
     Indication: MENOPAUSE
     Dosage: ONE SPRAY ON ARM

REACTIONS (1)
  - ACCIDENTAL EXPOSURE [None]
